FAERS Safety Report 9320143 (Version 2)
Quarter: 2013Q3

REPORT INFORMATION
  Report Type: Spontaneous
  Country: US (occurrence: US)
  Receive Date: 20130530
  Receipt Date: 20130703
  Transmission Date: 20140515
  Serious: Yes (Hospitalization)
  Sender: FDA-Public Use
  Company Number: US-BAXTER-2013BAX019965

PATIENT
  Age: 55 Year
  Sex: Female
  Weight: 107.5 kg

DRUGS (7)
  1. GAMMAGARD LIQUID [Suspect]
     Indication: IMMUNODEFICIENCY COMMON VARIABLE
     Route: 042
     Dates: start: 20130521, end: 20130521
  2. GAMMAGARD LIQUID [Suspect]
     Route: 042
     Dates: start: 20130504
  3. ASA CHEWABLE [Concomitant]
     Indication: PRODUCT USED FOR UNKNOWN INDICATION
     Route: 048
  4. LEVOTHYROXINE [Concomitant]
     Indication: HYPOTHYROIDISM
     Route: 048
  5. METOPROLOL [Concomitant]
     Indication: HYPERTENSION
     Route: 048
  6. PROTONIX [Concomitant]
     Indication: PRODUCT USED FOR UNKNOWN INDICATION
     Route: 048
  7. COUMADIN [Concomitant]
     Indication: ANTICOAGULANT THERAPY
     Dosage: VARIABLE
     Route: 048

REACTIONS (9)
  - Nausea [Unknown]
  - Vomiting [Unknown]
  - Bone disorder [Unknown]
  - Sepsis [Unknown]
  - Pyrexia [Recovered/Resolved]
  - Heart rate abnormal [Recovered/Resolved]
  - Anxiety [Recovered/Resolved]
  - Feeling cold [Recovered/Resolved]
  - Chills [Recovered/Resolved]
